FAERS Safety Report 7155096-3 (Version None)
Quarter: 2010Q4

REPORT INFORMATION
  Report Type: 
  Country: None (occurrence: None)
  Receive Date: 20101214
  Receipt Date: 20091222
  Transmission Date: 20110411
  Serious: No
  Sender: FDA-Public Use
  Company Number: US-AMGEN-TCS375971

PATIENT

DRUGS (12)
  1. ENBREL [Suspect]
     Indication: PSORIATIC ARTHROPATHY
     Dosage: 50 MG, QWK
     Route: 058
     Dates: start: 20090605
  2. ENBREL [Suspect]
     Indication: PSORIASIS
  3. METHOTREXATE [Concomitant]
     Dosage: 20 MG, QWK
     Route: 048
     Dates: start: 20090327
  4. ADDERALL 10 [Concomitant]
     Dosage: UNK UNK, UNK
     Dates: start: 20080101
  5. PRAMINPEXOLE DIHYDROCHLORIDE [Concomitant]
     Dosage: UNK UNK, UNK
     Dates: start: 20070101
  6. FOLIC ACID [Concomitant]
     Dosage: UNK UNK, UNK
     Dates: start: 20090327
  7. DULOXETINE HYDROCHLORIDE [Concomitant]
     Dosage: UNK UNK, UNK
     Dates: start: 20090603
  8. LAMOTRIGINE [Concomitant]
     Dosage: UNK UNK, UNK
     Dates: start: 20090821
  9. ACETAMINOPHEN AND HYDROCODONE BITARTRATE [Concomitant]
     Dosage: UNK UNK, UNK
     Dates: start: 20090701
  10. GABAPENTIN [Concomitant]
     Dosage: UNK UNK, UNK
     Dates: start: 20090922
  11. ERGOCALCIFEROL [Concomitant]
     Dosage: UNK UNK, UNK
     Dates: start: 20090101
  12. IBUPROFEN [Concomitant]

REACTIONS (3)
  - CARPAL TUNNEL DECOMPRESSION [None]
  - CELLULITIS [None]
  - SUBCUTANEOUS ABSCESS [None]
